FAERS Safety Report 8003598-X (Version None)
Quarter: 2011Q4

REPORT INFORMATION
  Report Type: 
  Country: None (occurrence: None)
  Receive Date: 20111222
  Receipt Date: 20111219
  Transmission Date: 20120403
  Serious: Yes (Hospitalization)
  Sender: FDA-Public Use
  Company Number: FR-PFIZER INC-2011307649

PATIENT
  Age: 75 Year
  Sex: Female

DRUGS (7)
  1. ZOLOFT [Suspect]
     Indication: DEPRESSION
     Dosage: 50 MG, 1X/DAY
     Route: 048
     Dates: start: 20110901, end: 20111001
  2. ZOLOFT [Interacting]
     Dosage: 100 MG, DAILY
     Route: 048
     Dates: start: 20111001, end: 20111102
  3. OMEPRAZOLE [Concomitant]
     Dosage: 20 MG, UNK
  4. AZILECT [Interacting]
     Indication: PARKINSON'S DISEASE
     Dosage: 1 MG, 1X/DAY
     Route: 048
     Dates: start: 20110901, end: 20111102
  5. AMANTADINE HCL [Concomitant]
     Indication: PARKINSON'S DISEASE
     Dosage: 100 MG, 2X/DAY
     Dates: start: 20110901, end: 20111108
  6. STALEVO 100 [Concomitant]
  7. LEVOTHYROXINE SODIUM [Concomitant]
     Dosage: 50 UG, UNK

REACTIONS (4)
  - SEROTONIN SYNDROME [None]
  - RHABDOMYOLYSIS [None]
  - DRUG INTERACTION [None]
  - ENCEPHALOPATHY [None]
